FAERS Safety Report 21062802 (Version 1)
Quarter: 2022Q3

REPORT INFORMATION
  Report Type: Spontaneous
  Country: ES (occurrence: ES)
  Receive Date: 20220711
  Receipt Date: 20220711
  Transmission Date: 20221027
  Serious: Yes (Hospitalization, Other)
  Sender: FDA-Public Use
  Company Number: ES-AEMPS-746771

PATIENT
  Age: 82 Year
  Sex: Female

DRUGS (10)
  1. METFORMIN HYDROCHLORIDE [Suspect]
     Active Substance: METFORMIN HYDROCHLORIDE
     Indication: Type 2 diabetes mellitus
     Dosage: TWO TIMES A DAY (1 COMPRIMIDO CADA 12 HORAS)
     Route: 065
     Dates: start: 20190704, end: 20200904
  2. HYDROCHLOROTHIAZIDE\IRBESARTAN [Suspect]
     Active Substance: HYDROCHLOROTHIAZIDE\IRBESARTAN
     Indication: Hypertension
     Dosage: 1 COMPRIMIDO CADA D?A
     Route: 065
     Dates: start: 20190704, end: 20200904
  3. ASPIRIN [Concomitant]
     Active Substance: ASPIRIN
     Indication: Product used for unknown indication
     Dosage: UNK (1 COMPRIMIDO CADA D?A)
     Route: 065
     Dates: start: 20200814, end: 20200904
  4. LEVOTHYROXINE SODIUM [Concomitant]
     Active Substance: LEVOTHYROXINE SODIUM
     Indication: Hypothyroidism
     Dosage: UNK (1 COMPRIMIDO CADA D?A)
     Route: 065
     Dates: start: 20191008
  5. FUROSEMIDE [Concomitant]
     Active Substance: FUROSEMIDE
     Indication: Product used for unknown indication
     Dosage: UNK (1 COMPRIMIDO CADA D?A)
     Route: 065
  6. GLUCOBAY [Concomitant]
     Active Substance: ACARBOSE
     Indication: Diabetes mellitus
     Dosage: UNK (1 COMPRIMIDO CADA 8 HORAS)
     Route: 065
     Dates: start: 20190704, end: 20200904
  7. EZETIMIBE\SIMVASTATIN [Concomitant]
     Active Substance: EZETIMIBE\SIMVASTATIN
     Indication: Hypercholesterolaemia
     Dosage: UNK (1 COMPRIMIDO CADA D?A)`
     Route: 065
  8. ACETAMINOPHEN [Concomitant]
     Active Substance: ACETAMINOPHEN
     Indication: Osteoarthritis
     Dosage: UNK (1 COMPRIMIDO CADA 8 HORAS)
     Route: 065
     Dates: start: 20200814, end: 20200904
  9. SITAGLIPTIN PHOSPHATE [Concomitant]
     Active Substance: SITAGLIPTIN PHOSPHATE
     Indication: Diabetes mellitus
     Dosage: UNK (1 COMPRIMIDO CADA D?A)
     Route: 065
     Dates: start: 20190704, end: 20200904
  10. ALLOPURINOL [Concomitant]
     Active Substance: ALLOPURINOL
     Indication: Product used for unknown indication
     Dosage: UNK (1 COMPRIMIDO CADA D?A)
     Route: 065
     Dates: start: 20190704, end: 20200904

REACTIONS (2)
  - Hyperkalaemia [Recovered/Resolved]
  - Lactic acidosis [Recovered/Resolved]

NARRATIVE: CASE EVENT DATE: 20200818
